FAERS Safety Report 5340899-8 (Version None)
Quarter: 2007Q2

REPORT INFORMATION
  Report Type: 
  Country: None (occurrence: None)
  Receive Date: 20070405
  Receipt Date: 20061109
  Transmission Date: 20071010
  Serious: No
  Sender: FDA-Public Use
  Company Number: US200605002053

PATIENT
  Age: 50 Year
  Sex: Female

DRUGS (6)
  1. CYMBALTA [Suspect]
     Indication: ANXIETY DISORDER
     Dosage: 60 MG
     Dates: start: 20050101
  2. FLUOXETINE HYDROCHLORIDE [Suspect]
     Indication: ANXIETY
     Dates: end: 20050101
  3. PREVACID [Concomitant]
  4. ALLEGRA [Concomitant]
  5. ESZOPICLONE (ESZOPICLONE) [Concomitant]
  6. ALPRAZOLAM [Concomitant]

REACTIONS (6)
  - DRUG INEFFECTIVE [None]
  - FEELING ABNORMAL [None]
  - FEELING JITTERY [None]
  - HERNIA PAIN [None]
  - INTERVERTEBRAL DISC PROTRUSION [None]
  - NERVOUSNESS [None]
